FAERS Safety Report 4707853-8 (Version None)
Quarter: 2005Q3

REPORT INFORMATION
  Report Type: 
  Country: None (occurrence: None)
  Receive Date: 20050701
  Receipt Date: 20050624
  Transmission Date: 20060218
  Serious: Yes (Death, Life-Threatening, Other)
  Sender: FDA-Public Use
  Company Number: 2005085168

PATIENT
  Age: 58 Year
  Sex: Female
  Weight: 59.8748 kg

DRUGS (16)
  1. HEPARIN SODIUM [Suspect]
     Indication: SEPSIS
     Dates: start: 20050511, end: 20050512
  2. XIGRIS [Suspect]
     Indication: SEPSIS
     Dates: start: 20050511, end: 20050512
  3. ANAEROBEX (METRONIDAZOLE) [Concomitant]
  4. CIPROFLOXACIN [Concomitant]
  5. OPTINEM (MEROPENEM) [Concomitant]
  6. PANTOPRAZOLE SODIUM [Concomitant]
  7. ALL OTHER THERAPEUTIC PRODUCTS (ALL OTHER THERAPEUTIC PRODUCTS) [Concomitant]
  8. BERODUAL (FENOTEROL HYDROBROMIDE, IPRATROPIUM BROMIDE) [Concomitant]
  9. KETANEST (KETAMINE HYDROCHLORIDE) [Concomitant]
  10. SUFENTANIL (SUFENTANIL) [Concomitant]
  11. MIDAZOLAM (MIDAZOLAM) [Concomitant]
  12. SOLU-CORTEF [Concomitant]
  13. SUPRARENIN (EPINEPHRINE) [Concomitant]
  14. PRESSALIN (DIHYDRALAZINE SULFATE) [Concomitant]
  15. NOREPINEPHRINE (NOREPINEPHRINE) [Concomitant]
  16. DOBUTREX [Concomitant]

REACTIONS (3)
  - CARDIAC ARREST [None]
  - CARDIOGENIC SHOCK [None]
  - MULTI-ORGAN FAILURE [None]
